FAERS Safety Report 6219708-0 (Version None)
Quarter: 2009Q2

REPORT INFORMATION
  Report Type: 
  Country: None (occurrence: None)
  Receive Date: 20090605
  Receipt Date: 20090526
  Transmission Date: 20091009
  Serious: Yes (Death, Hospitalization)
  Sender: FDA-Public Use
  Company Number: 1-18595375

PATIENT
  Age: 69 Year
  Sex: Female
  Weight: 103.783 kg

DRUGS (1)
  1. MINOXIDIL [Suspect]
     Indication: HYPERTENSION
     Dosage: 2.5 MG DAILY ORAL
     Route: 048

REACTIONS (9)
  - ANGIOEDEMA [None]
  - CARDIO-RESPIRATORY ARREST [None]
  - GENERAL PHYSICAL HEALTH DETERIORATION [None]
  - HAEMODIALYSIS [None]
  - LIP HAEMORRHAGE [None]
  - SEPSIS [None]
  - STEVENS-JOHNSON SYNDROME [None]
  - SWOLLEN TONGUE [None]
  - TOXIC EPIDERMAL NECROLYSIS [None]
